FAERS Safety Report 14075253 (Version 1)
Quarter: 2017Q4

REPORT INFORMATION
  Report Type: Spontaneous
  Country: US (occurrence: US)
  Receive Date: 20171010
  Receipt Date: 20171010
  Transmission Date: 20180321
  Serious: No
  Sender: FDA-Public Use
  Company Number: US-MYLANLABS-2016M1042077

PATIENT
  Age: 74 Year
  Sex: Male
  Weight: 77.98 kg

DRUGS (1)
  1. VERAPAMIL HYDROCHLORIDE EXTENDED-RELEASE CAPSULES, USP [Suspect]
     Active Substance: VERAPAMIL HYDROCHLORIDE
     Indication: HYPERTENSION
     Dosage: 120 MG, QD
     Route: 048
     Dates: start: 201607

REACTIONS (2)
  - Constipation [Not Recovered/Not Resolved]
  - Nausea [Not Recovered/Not Resolved]

NARRATIVE: CASE EVENT DATE: 201607
